FAERS Safety Report 23402121 (Version 2)
Quarter: 2024Q1

REPORT INFORMATION
  Report Type: Spontaneous
  Country: FR (occurrence: FR)
  Receive Date: 20240115
  Receipt Date: 20240221
  Transmission Date: 20240409
  Serious: Yes (Hospitalization)
  Sender: FDA-Public Use
  Company Number: None

PATIENT
  Age: 74 Year
  Sex: Male
  Weight: 92 kg

DRUGS (4)
  1. LANSOPRAZOLE [Suspect]
     Active Substance: LANSOPRAZOLE
     Indication: Prophylaxis
     Dosage: 1FP
     Route: 048
     Dates: start: 20231119
  2. TAHOR [Suspect]
     Active Substance: ATORVASTATIN CALCIUM
     Indication: Prophylaxis
     Dosage: UNKNOWN DOSE,1FP
     Route: 048
     Dates: start: 20210902
  3. PERINDOPRIL [Suspect]
     Active Substance: PERINDOPRIL
     Indication: Hypertension
     Dosage: 1FP
     Route: 048
     Dates: start: 20210913
  4. METFORMIN HYDROCHLORIDE\VILDAGLIPTIN [Suspect]
     Active Substance: METFORMIN HYDROCHLORIDE\VILDAGLIPTIN
     Indication: Type 2 diabetes mellitus
     Dosage: 1 CP / TWICE PER DAY,1FP
     Route: 048
     Dates: start: 20230907, end: 20231129

REACTIONS (1)
  - Interstitial lung disease [Not Recovered/Not Resolved]

NARRATIVE: CASE EVENT DATE: 20231012
